FAERS Safety Report 4369079-X (Version None)
Quarter: 2004Q2

REPORT INFORMATION
  Report Type: 
  Country: None (occurrence: None)
  Receive Date: 20040527
  Receipt Date: 20040512
  Transmission Date: 20050107
  Serious: Yes (Hospitalization)
  Sender: FDA-Public Use
  Company Number: 198013

PATIENT
  Age: 46 Year
  Sex: Female
  Weight: 74.3899 kg

DRUGS (6)
  1. AVONEX [Suspect]
     Indication: MULTIPLE SCLEROSIS
     Dosage: 30 MCG QW IM
     Route: 030
     Dates: start: 20010101, end: 20020101
  2. AVONEX [Suspect]
     Indication: MULTIPLE SCLEROSIS
     Dosage: 30 MCG QW IM
     Route: 030
     Dates: start: 20040101
  3. CELEXA [Concomitant]
  4. TOPAMAX [Concomitant]
  5. PROTONIX [Concomitant]
  6. MULTIVITAMIN [Concomitant]

REACTIONS (10)
  - ANOREXIA [None]
  - BLOOD POTASSIUM DECREASED [None]
  - COLITIS [None]
  - CYST [None]
  - GASTRIC SARCOMA [None]
  - INTESTINAL OBSTRUCTION [None]
  - MULTIPLE SCLEROSIS RELAPSE [None]
  - SINUS DISORDER [None]
  - WALKING AID USER [None]
  - WEIGHT DECREASED [None]
